FAERS Safety Report 24762520 (Version 1)
Quarter: 2024Q4

REPORT INFORMATION
  Report Type: Spontaneous
  Country: US (occurrence: US)
  Receive Date: 20241221
  Receipt Date: 20241221
  Transmission Date: 20250115
  Serious: No
  Sender: MERCK
  Company Number: US-009507513-2412USA005005

PATIENT
  Age: 23 Year
  Sex: Female

DRUGS (1)
  1. JANUVIA [Suspect]
     Active Substance: SITAGLIPTIN PHOSPHATE
     Indication: Monogenic diabetes
     Dosage: 50 MG DAILY
     Route: 048

REACTIONS (1)
  - Product use in unapproved indication [Unknown]
